FAERS Safety Report 9454572 (Version 2)
Quarter: 2013Q3

REPORT INFORMATION
  Report Type: Spontaneous
  Country: US (occurrence: None)
  Receive Date: 20130808
  Receipt Date: 20130812
  Transmission Date: 20140515
  Serious: Yes (Other)
  Sender: FDA-Public Use
  Company Number: AUR-APL-2013-06476

PATIENT
  Age: 31 Year
  Sex: Female
  Weight: 99.77 kg

DRUGS (3)
  1. LOSARTAN (LOSARTAN) [Suspect]
     Indication: BLOOD PRESSURE INCREASED
  2. ZOLOFT (SERTRALINE HYDROCHLORIDE) [Suspect]
     Indication: DEPRESSION
     Dates: start: 201211, end: 2013
  3. HALDOL [Suspect]
     Indication: PRODUCT USED FOR UNKNOWN INDICATION

REACTIONS (3)
  - Drug interaction [None]
  - Delusion [None]
  - Dizziness [None]
